FAERS Safety Report 19809133 (Version 1)
Quarter: 2021Q3

REPORT INFORMATION
  Report Type: Other
  Country: CN (occurrence: CN)
  Receive Date: 20210908
  Receipt Date: 20210908
  Transmission Date: 20211014
  Serious: No
  Sender: FDA-Public Use
  Company Number: CN-ROCHE-2906466

PATIENT
  Age: 24 Year
  Sex: Female

DRUGS (3)
  1. ABIDOR [Concomitant]
     Indication: COVID-19
  2. OSELTAMIVIR [Suspect]
     Active Substance: OSELTAMIVIR
     Indication: COVID-19
     Route: 065
  3. AZITHROMYCIN ANHYDROUS. [Concomitant]
     Active Substance: AZITHROMYCIN ANHYDROUS
     Indication: COVID-19

REACTIONS (4)
  - Placental disorder [Unknown]
  - Placental infarction [Unknown]
  - Off label use [Unknown]
  - Maternal exposure during pregnancy [Unknown]
